FAERS Safety Report 25651328 (Version 1)
Quarter: 2025Q3

REPORT INFORMATION
  Report Type: Spontaneous
  Country: JP (occurrence: JP)
  Receive Date: 20250806
  Receipt Date: 20250806
  Transmission Date: 20251020
  Serious: Yes (Other)
  Sender: EMD SERONO INC
  Company Number: JP-Merck Healthcare KGaA-2025039841

PATIENT
  Age: 75 Year
  Sex: Male

DRUGS (5)
  1. BAVENCIO [Suspect]
     Active Substance: AVELUMAB
     Indication: Renal cancer
  2. AXITINIB [Suspect]
     Active Substance: AXITINIB
     Indication: Renal cancer
  3. AXITINIB [Suspect]
     Active Substance: AXITINIB
  4. WARFARIN [Suspect]
     Active Substance: WARFARIN
     Indication: Product used for unknown indication
  5. ASPIRIN [Concomitant]
     Active Substance: ASPIRIN
     Indication: Product used for unknown indication

REACTIONS (5)
  - Adrenal insufficiency [Unknown]
  - Gastric haemorrhage [Unknown]
  - Hypertension [Unknown]
  - Proteinuria [Unknown]
  - Malaise [Unknown]

NARRATIVE: CASE EVENT DATE: 20220401
